FAERS Safety Report 25307650 (Version 1)
Quarter: 2025Q2

REPORT INFORMATION
  Report Type: Spontaneous
  Country: US (occurrence: None)
  Receive Date: 20250513
  Receipt Date: 20250513
  Transmission Date: 20250716
  Serious: Yes (Other)
  Sender: FDA-CTU
  Company Number: None

PATIENT
  Age: 33 Year
  Sex: Female
  Weight: 63 kg

DRUGS (4)
  1. SIMVASTATIN [Suspect]
     Active Substance: SIMVASTATIN
     Indication: Blood cholesterol increased
     Dates: start: 20070701, end: 20070702
  2. ERYTHROMYCIN [Suspect]
     Active Substance: ERYTHROMYCIN
  3. AZITHROMYCIN [Suspect]
     Active Substance: AZITHROMYCIN
  4. BIAXIN [Suspect]
     Active Substance: CLARITHROMYCIN

REACTIONS (1)
  - Hyperthermia malignant [None]

NARRATIVE: CASE EVENT DATE: 20070701
